FAERS Safety Report 6023777-0 (Version None)
Quarter: 2008Q4

REPORT INFORMATION
  Report Type: 
  Country: None (occurrence: None)
  Receive Date: 20081230
  Receipt Date: 20081221
  Transmission Date: 20090506
  Serious: Yes (Hospitalization, Other)
  Sender: FDA-Public Use
  Company Number: US-AMGEN-QUU325209

PATIENT
  Sex: Female

DRUGS (2)
  1. ENBREL [Suspect]
     Indication: PSORIATIC ARTHROPATHY
     Route: 058
     Dates: start: 20021125
  2. UNSPECIFIED PAIN MEDICATION [Concomitant]

REACTIONS (7)
  - BACK INJURY [None]
  - FALL [None]
  - HOSPITALISATION [None]
  - MYOCARDIAL INFARCTION [None]
  - OVERDOSE [None]
  - PULMONARY THROMBOSIS [None]
  - SPINAL FRACTURE [None]
